FAERS Safety Report 6367707-0 (Version None)
Quarter: 2009Q3

REPORT INFORMATION
  Report Type: 
  Country: None (occurrence: None)
  Receive Date: 20090921
  Receipt Date: 20090910
  Transmission Date: 20100115
  Serious: Yes (Other)
  Sender: FDA-Public Use
  Company Number: US-PFIZER INC-2009269135

PATIENT
  Sex: Female
  Weight: 205.93 kg

DRUGS (1)
  1. LIPITOR [Suspect]
     Indication: BLOOD CHOLESTEROL INCREASED
     Route: 048
     Dates: start: 20010101, end: 20010101

REACTIONS (2)
  - HYPERTENSION [None]
  - OEDEMA PERIPHERAL [None]
